FAERS Safety Report 8988110 (Version 1)
Quarter: 2012Q4

REPORT INFORMATION
  Report Type: 
  Country: FR (occurrence: FR)
  Receive Date: 20121227
  Receipt Date: 20121227
  Transmission Date: 20130627
  Serious: Yes (Hospitalization)
  Sender: FDA-Public Use
  Company Number: JP-ASTRAZENECA-2012SE95507

PATIENT
  Age: 59 Year
  Sex: Male

DRUGS (4)
  1. KENZEN [Suspect]
     Indication: HYPERTENSION
     Route: 048
     Dates: start: 201206, end: 20121029
  2. XANAX [Concomitant]
     Indication: DEPRESSION
  3. LIPIKAR [Concomitant]
     Indication: PRODUCT USED FOR UNKNOWN INDICATION
  4. TELFAST [Concomitant]
     Indication: PRODUCT USED FOR UNKNOWN INDICATION

REACTIONS (1)
  - Erythrodermic psoriasis [Not Recovered/Not Resolved]
